FAERS Safety Report 8568402 (Version 4)
Quarter: 2012Q4

REPORT INFORMATION
  Report Type: 
  Country: US (occurrence: US)
  Receive Date: 20120518
  Receipt Date: 20120917
  Transmission Date: 20130627
  Serious: Yes (Other)
  Sender: FDA-Public Use
  Company Number: US-PFIZER INC-2012118377

PATIENT
  Age: 66 Year
  Sex: Female
  Weight: 72.56 kg

DRUGS (3)
  1. LYRICA [Suspect]
     Indication: NEUROPATHY PERIPHERAL
     Dosage: 75 mg, 2x/day
     Route: 048
     Dates: start: 2009, end: 201207
  2. LIPITOR [Suspect]
     Indication: BLOOD CHOLESTEROL INCREASED
     Dosage: 20 mg, 1x/day
     Route: 048
  3. TOVIAZ [Suspect]
     Indication: EOSINOPHILIC CYSTITIS
     Dosage: 8 mg, 1x/day
     Route: 048

REACTIONS (7)
  - Accident at work [Unknown]
  - Depression [Not Recovered/Not Resolved]
  - Anxiety [Not Recovered/Not Resolved]
  - Aphagia [Unknown]
  - Weight increased [Unknown]
  - Malaise [Unknown]
  - Weight decreased [Unknown]
